FAERS Safety Report 21499626 (Version 1)
Quarter: 2022Q4

REPORT INFORMATION
  Report Type: Spontaneous
  Country: US (occurrence: None)
  Receive Date: 20221024
  Receipt Date: 20221024
  Transmission Date: 20230112
  Serious: Yes (Other)
  Sender: FDA-Public Use
  Company Number: None

PATIENT
  Age: 67 Year
  Sex: Male

DRUGS (5)
  1. ERAVACYCLINE [Suspect]
     Active Substance: ERAVACYCLINE
     Indication: Osteomyelitis
  2. Azithomycin [Concomitant]
  3. Imipenem-cilistatin [Concomitant]
  4. LINEZOLID [Concomitant]
     Active Substance: LINEZOLID
  5. OMADACYCLINE [Concomitant]
     Active Substance: OMADACYCLINE

REACTIONS (1)
  - Hypofibrinogenaemia [None]
